FAERS Safety Report 12328856 (Version 1)
Quarter: 2016Q2

REPORT INFORMATION
  Report Type: Spontaneous
  Country: US (occurrence: US)
  Receive Date: 20160503
  Receipt Date: 20160503
  Transmission Date: 20160815
  Serious: No
  Sender: FDA-Public Use
  Company Number: US-BEH-2015051295

PATIENT
  Sex: Female
  Weight: 82 kg

DRUGS (7)
  1. HIZENTRA [Suspect]
     Active Substance: HUMAN IMMUNOGLOBULIN G
     Dosage: 4 G 20 ML VIAL
     Route: 058
  2. ACETAMINOPHEN. [Concomitant]
     Active Substance: ACETAMINOPHEN
     Dosage: EVERY 4 TO 6 HOURS AS NEEDED
     Route: 048
  3. LMX [Concomitant]
     Active Substance: LIDOCAINE
     Dosage: 4% EMAL 30
     Route: 061
  4. DIPHENHYDRAMINE. [Concomitant]
     Active Substance: DIPHENHYDRAMINE
     Route: 048
  5. EPIPEN [Concomitant]
     Active Substance: EPINEPHRINE
     Indication: ANAPHYLACTIC REACTION
     Route: 030
  6. LIDOCAINE. [Concomitant]
     Active Substance: LIDOCAINE
     Dosage: 4% AS DIRECTED
     Route: 061
  7. HIZENTRA [Suspect]
     Active Substance: HUMAN IMMUNOGLOBULIN G
     Indication: IMMUNODEFICIENCY COMMON VARIABLE
     Dosage: 2 G 10 ML VIAL
     Route: 058

REACTIONS (2)
  - Infusion site pruritus [Unknown]
  - Infusion site swelling [Unknown]
